FAERS Safety Report 14841315 (Version 3)
Quarter: 2018Q3

REPORT INFORMATION
  Report Type: Spontaneous
  Country: GB (occurrence: GB)
  Receive Date: 20180503
  Receipt Date: 20180701
  Transmission Date: 20181010
  Serious: Yes (Hospitalization, Other)
  Sender: FDA-Public Use
  Company Number: GB-TORRENT-00016464

PATIENT
  Age: 71 Year
  Sex: Female

DRUGS (2)
  1. ARIPIPRAZOLE. [Suspect]
     Active Substance: ARIPIPRAZOLE
     Indication: BIPOLAR DISORDER
     Dosage: UNKNOWN
     Route: 065
  2. RISPERIDONE. [Suspect]
     Active Substance: RISPERIDONE
     Indication: BIPOLAR DISORDER

REACTIONS (7)
  - Nipple disorder [Unknown]
  - Pruritus [Unknown]
  - Hyperprolactinaemia [Recovered/Resolved]
  - Bipolar disorder [Unknown]
  - Off label use [Unknown]
  - Galactorrhoea [Unknown]
  - Disease recurrence [Unknown]
